FAERS Safety Report 11585623 (Version 1)
Quarter: 2015Q4

REPORT INFORMATION
  Report Type: Spontaneous
  Country: US (occurrence: US)
  Receive Date: 20151001
  Receipt Date: 20151001
  Transmission Date: 20160304
  Serious: Yes (Other)
  Sender: FDA-Public Use
  Company Number: US-BRISTOL-MYERS SQUIBB COMPANY-BMS-2015-064180

PATIENT
  Age: 74 Year
  Sex: Female

DRUGS (1)
  1. SPRYCEL [Suspect]
     Active Substance: DASATINIB
     Indication: CHRONIC MYELOID LEUKAEMIA
     Dosage: 100 MG, QD
     Route: 048
     Dates: start: 20130304

REACTIONS (5)
  - Pneumonia [Unknown]
  - Bronchitis [Unknown]
  - Cough [Unknown]
  - Pulmonary oedema [Unknown]
  - Renal disorder [Unknown]

NARRATIVE: CASE EVENT DATE: 201504
